FAERS Safety Report 14184040 (Version 4)
Quarter: 2017Q4

REPORT INFORMATION
  Report Type: Spontaneous
  Country: US (occurrence: US)
  Receive Date: 20171113
  Receipt Date: 20171213
  Transmission Date: 20180321
  Serious: Yes (Other)
  Sender: FDA-Public Use
  Company Number: PHEH2017US035498

PATIENT
  Age: 62 Year
  Sex: Female

DRUGS (22)
  1. BUPROPION HCL ER [Concomitant]
     Active Substance: BUPROPION HYDROCHLORIDE
     Indication: PRODUCT USED FOR UNKNOWN INDICATION
     Route: 065
  2. VITAMIIN C [Concomitant]
     Active Substance: ASCORBIC ACID
     Indication: PRODUCT USED FOR UNKNOWN INDICATION
     Route: 065
  3. FEMARA [Suspect]
     Active Substance: LETROZOLE
     Indication: BREAST CANCER
     Dosage: UNK
     Route: 065
     Dates: start: 201509
  4. LISINOPRIL. [Concomitant]
     Active Substance: LISINOPRIL
     Indication: PRODUCT USED FOR UNKNOWN INDICATION
     Route: 065
  5. PANTOPRAZOLE [Concomitant]
     Active Substance: PANTOPRAZOLE
     Indication: PRODUCT USED FOR UNKNOWN INDICATION
     Route: 065
  6. AMLODIPINE [Concomitant]
     Active Substance: AMLODIPINE BESYLATE
     Indication: PRODUCT USED FOR UNKNOWN INDICATION
     Route: 065
  7. CALCIUM [Concomitant]
     Active Substance: CALCIUM
     Indication: PRODUCT USED FOR UNKNOWN INDICATION
     Dosage: 600 MG, UNK
     Route: 065
  8. MOUTH WASH [Concomitant]
     Indication: PRODUCT USED FOR UNKNOWN INDICATION
     Route: 065
  9. VITAMIN D3 [Concomitant]
     Active Substance: CHOLECALCIFEROL
     Indication: PRODUCT USED FOR UNKNOWN INDICATION
     Dosage: 1000 U, UNK
     Route: 065
  10. HERCEPTIN [Concomitant]
     Active Substance: TRASTUZUMAB
     Indication: PRODUCT USED FOR UNKNOWN INDICATION
     Dosage: UNK, EVERY 3 WEEKS
     Route: 065
     Dates: end: 201612
  11. DILAUDID [Concomitant]
     Active Substance: HYDROMORPHONE HYDROCHLORIDE
     Indication: PRODUCT USED FOR UNKNOWN INDICATION
     Route: 065
  12. NEURONTIN [Concomitant]
     Active Substance: GABAPENTIN
     Indication: PRODUCT USED FOR UNKNOWN INDICATION
     Route: 065
  13. PROBIOTIC [Concomitant]
     Active Substance: PROBIOTICS NOS
     Indication: PRODUCT USED FOR UNKNOWN INDICATION
     Route: 065
  14. TRAZODONE [Concomitant]
     Active Substance: TRAZODONE HYDROCHLORIDE
     Indication: PRODUCT USED FOR UNKNOWN INDICATION
     Route: 065
  15. IBRANCE [Suspect]
     Active Substance: PALBOCICLIB
     Indication: BREAST CANCER
     Dosage: UNK
     Route: 065
     Dates: start: 201509
  16. FASLODEX [Concomitant]
     Active Substance: FULVESTRANT
     Indication: PRODUCT USED FOR UNKNOWN INDICATION
     Dosage: UNK, EVERY MONTH
     Route: 065
     Dates: start: 201612
  17. MARIJUANA [Concomitant]
     Active Substance: CANNABIS SATIVA SUBSP. INDICA TOP
     Indication: PRODUCT USED FOR UNKNOWN INDICATION
     Route: 065
  18. ALBUTEROL SULFATE. [Concomitant]
     Active Substance: ALBUTEROL SULFATE
     Indication: PRODUCT USED FOR UNKNOWN INDICATION
     Route: 065
  19. METFORMIN [Concomitant]
     Active Substance: METFORMIN HYDROCHLORIDE
     Indication: PRODUCT USED FOR UNKNOWN INDICATION
     Route: 065
  20. IBRANCE [Suspect]
     Active Substance: PALBOCICLIB
     Dosage: 75 MG, 3 WEEKS IN A ROW FOLLOWED BY A WEEK OFF
     Route: 065
  21. NYSTATIN. [Concomitant]
     Active Substance: NYSTATIN
     Indication: PRODUCT USED FOR UNKNOWN INDICATION
     Dosage: 100000 U/ML, UNK
     Route: 048
  22. IBRANCE [Suspect]
     Active Substance: PALBOCICLIB
     Dosage: LOWER DOSE
     Route: 065

REACTIONS (29)
  - Gastrooesophageal reflux disease [Unknown]
  - Musculoskeletal chest pain [Unknown]
  - Tumour marker increased [Unknown]
  - Asthma [Unknown]
  - Tension headache [Unknown]
  - Discomfort [Unknown]
  - Dysphagia [Unknown]
  - Restlessness [Unknown]
  - Erythema [Unknown]
  - Depression [Unknown]
  - Arthralgia [Unknown]
  - Duodenitis [Unknown]
  - Gastritis [Unknown]
  - Myalgia [Unknown]
  - Dyspnoea exertional [Unknown]
  - Anxiety [Unknown]
  - Headache [Unknown]
  - Lymphoedema [Unknown]
  - Cytopenia [Unknown]
  - Diabetes mellitus [Unknown]
  - Contusion [Unknown]
  - Haemoglobin decreased [Unknown]
  - Nervousness [Unknown]
  - Insomnia [Unknown]
  - Hypertension [Unknown]
  - Cough [Unknown]
  - Hot flush [Unknown]
  - Pain [Unknown]
  - Fatigue [Unknown]

NARRATIVE: CASE EVENT DATE: 20160429
